FAERS Safety Report 7255777-7 (Version None)
Quarter: 2011Q1

REPORT INFORMATION
  Report Type: 
  Country: None (occurrence: None)
  Receive Date: 20110129
  Receipt Date: 20100831
  Transmission Date: 20110831
  Serious: No
  Sender: FDA-Public Use
  Company Number: US-ABBOTT-10P-163-0667675-00

PATIENT
  Age: 51 Year
  Sex: Female

DRUGS (2)
  1. HUMIRA [Suspect]
     Dosage: 1 EVERY 2 WEEKS AFTER LOADING DOSE
     Dates: start: 20100901
  2. HUMIRA [Suspect]
     Indication: PSORIASIS
     Dosage: LOADING DOSE
     Dates: start: 20100831, end: 20100831

REACTIONS (2)
  - INJURY ASSOCIATED WITH DEVICE [None]
  - WRONG TECHNIQUE IN DRUG USAGE PROCESS [None]
